FAERS Safety Report 8170958-6 (Version None)
Quarter: 2012Q1

REPORT INFORMATION
  Report Type: 
  Country: None (occurrence: None)
  Receive Date: 20120228
  Receipt Date: 20120221
  Transmission Date: 20120608
  Serious: Yes (Death, Life-Threatening, Hospitalization)
  Sender: FDA-Public Use
  Company Number: FR-UCBSA-005218

PATIENT
  Age: 66 Year
  Sex: Male

DRUGS (8)
  1. KEPPRA [Suspect]
     Indication: CONVULSION
     Route: 048
     Dates: start: 20071101, end: 20081113
  2. PIPERACILLIN AND TAZOBACTAM [Suspect]
     Route: 042
     Dates: start: 20081113, end: 20081114
  3. KEPPRA [Suspect]
     Route: 048
     Dates: start: 20081128, end: 20081207
  4. SIMVASTATIN [Concomitant]
  5. TRILEPTAL [Suspect]
     Route: 042
     Dates: start: 20081211, end: 20081217
  6. CIPROFLOXACIN [Suspect]
     Route: 042
     Dates: start: 20081113, end: 20081124
  7. CIPROFLOXACIN [Suspect]
     Route: 042
     Dates: start: 20081202, end: 20081206
  8. ROCEPHIN [Suspect]
     Route: 042
     Dates: start: 20081115, end: 20081124

REACTIONS (12)
  - RENAL FAILURE [None]
  - HEPATIC FAILURE [None]
  - SUPRAVENTRICULAR TACHYCARDIA [None]
  - ORGAN FAILURE [None]
  - CONVULSION [None]
  - EOSINOPHIL COUNT INCREASED [None]
  - ASCITES [None]
  - LYMPHADENOPATHY MEDIASTINAL [None]
  - PLEURAL EFFUSION [None]
  - TOXIC EPIDERMAL NECROLYSIS [None]
  - HAEMATURIA [None]
  - RESPIRATORY DISTRESS [None]
